FAERS Safety Report 17143085 (Version 1)
Quarter: 2019Q4

REPORT INFORMATION
  Report Type: Spontaneous
  Country: US (occurrence: US)
  Receive Date: 20191211
  Receipt Date: 20191211
  Transmission Date: 20200122
  Serious: Yes (Other)
  Sender: FDA-Public Use
  Company Number: None

PATIENT
  Age: 47 Year
  Sex: Female

DRUGS (1)
  1. NUCALA [Suspect]
     Active Substance: MEPOLIZUMAB
     Indication: ASTHMA
     Dosage: ?          OTHER FREQUENCY:ONE DOSE PER MONTH;?
     Route: 058
     Dates: start: 20191001

REACTIONS (3)
  - Pyrexia [None]
  - Flank pain [None]
  - Hypophagia [None]

NARRATIVE: CASE EVENT DATE: 20191208
